FAERS Safety Report 19632055 (Version 1)
Quarter: 2021Q3

REPORT INFORMATION
  Report Type: Spontaneous
  Country: US (occurrence: US)
  Receive Date: 20210728
  Receipt Date: 20210728
  Transmission Date: 20211014
  Serious: No
  Sender: FDA-Public Use
  Company Number: US-ROCHE-2618869

PATIENT
  Age: 50 Year
  Sex: Male

DRUGS (2)
  1. XELODA [Suspect]
     Active Substance: CAPECITABINE
     Route: 048
  2. XELODA [Suspect]
     Active Substance: CAPECITABINE
     Indication: COLORECTAL CANCER
     Route: 048
     Dates: start: 202005

REACTIONS (4)
  - Stomatitis [Unknown]
  - Lip ulceration [Unknown]
  - Hiccups [Unknown]
  - Blister [Unknown]

NARRATIVE: CASE EVENT DATE: 20200605
